FAERS Safety Report 9736090 (Version 1)
Quarter: 2013Q4

REPORT INFORMATION
  Report Type: Spontaneous
  Country: FR (occurrence: FR)
  Receive Date: 20131206
  Receipt Date: 20131206
  Transmission Date: 20140711
  Serious: Yes (Hospitalization)
  Sender: FDA-Public Use
  Company Number: FR-GLAXOSMITHKLINE-B0949028A

PATIENT
  Age: 59 Year
  Sex: Male

DRUGS (4)
  1. REVOLADE [Suspect]
     Indication: THROMBOCYTOPENIA
     Dosage: 75MG PER DAY
     Route: 048
     Dates: start: 20130715
  2. VFEND [Suspect]
     Indication: BRONCHOPULMONARY ASPERGILLOSIS
     Dosage: 200MG TWICE PER DAY
     Route: 048
     Dates: start: 20130718
  3. CANCIDAS [Suspect]
     Indication: BRONCHOPULMONARY ASPERGILLOSIS
     Dosage: 50MG PER DAY
     Route: 042
     Dates: start: 20130903, end: 20131017
  4. VALACICLOVIR [Suspect]
     Indication: BRONCHOPULMONARY ASPERGILLOSIS
     Dosage: 500MG PER DAY
     Route: 048
     Dates: start: 20130905

REACTIONS (2)
  - VIIth nerve paralysis [Recovered/Resolved]
  - Off label use [Unknown]
